FAERS Safety Report 9647688 (Version 3)
Quarter: 2014Q1

REPORT INFORMATION
  Report Type: Report from Study
  Country: JP (occurrence: JP)
  Receive Date: 20131028
  Receipt Date: 20140107
  Transmission Date: 20141002
  Serious: Yes (Hospitalization)
  Sender: FDA-Public Use
  Company Number: JP-ROCHE-1291063

PATIENT
  Age: 36 Year
  Sex: Male
  Weight: 55 kg

DRUGS (7)
  1. BEVACIZUMAB [Suspect]
     Indication: MALIGNANT GLIOMA
     Route: 041
     Dates: start: 20131001, end: 20131001
  2. BEVACIZUMAB [Suspect]
     Indication: ASTROCYTOMA
     Route: 041
     Dates: start: 20131015, end: 20131015
  3. BEVACIZUMAB [Suspect]
     Indication: ASTROCYTOMA
     Route: 041
     Dates: start: 20131029, end: 20131029
  4. BEVACIZUMAB [Suspect]
     Indication: OFF LABEL USE
     Route: 041
     Dates: start: 20131112, end: 20131112
  5. BEVACIZUMAB [Suspect]
     Route: 041
     Dates: start: 20131126, end: 20131126
  6. BEVACIZUMAB [Suspect]
     Route: 041
     Dates: start: 20131210, end: 20131210
  7. BEVACIZUMAB [Suspect]
     Route: 041
     Dates: start: 20131224

REACTIONS (1)
  - Epilepsy [Recovered/Resolved]
